FAERS Safety Report 16698535 (Version 1)
Quarter: 2019Q3

REPORT INFORMATION
  Report Type: Spontaneous
  Country: FR (occurrence: FR)
  Receive Date: 20190813
  Receipt Date: 20190813
  Transmission Date: 20191004
  Serious: Yes (Life-Threatening)
  Sender: FDA-Public Use
  Company Number: FR-PFIZER INC-2019343711

PATIENT
  Age: 66 Year
  Sex: Male
  Weight: 76 kg

DRUGS (14)
  1. ANTI-CD19 MONOCLONAL ANTIBODY [Concomitant]
     Indication: B-CELL TYPE ACUTE LEUKAEMIA
  2. AMBISOME [Concomitant]
     Active Substance: AMPHOTERICIN B
     Indication: TRICHOSPORON INFECTION
  3. MUROMONAB-CD3 [Concomitant]
     Active Substance: MUROMONAB-CD3
     Indication: PANCYTOPENIA
  4. AMBISOME [Concomitant]
     Active Substance: AMPHOTERICIN B
     Indication: FUNGAL INFECTION
     Dosage: 3 MG/KG, DAILY (LIPOSOMAL FORM)
     Route: 042
     Dates: start: 20180718, end: 20180828
  5. ANTI-CD19 MONOCLONAL ANTIBODY [Concomitant]
     Indication: PANCYTOPENIA
     Dosage: UNK
     Dates: start: 201806
  6. VORICONAZOLE. [Suspect]
     Active Substance: VORICONAZOLE
     Indication: FUNGAL INFECTION
     Dosage: 6 MG/KG, 2X/DAY(12 HRS FOR 1 DAY)
     Route: 042
     Dates: start: 20180718
  7. BLINATUMOMAB [Concomitant]
     Active Substance: BLINATUMOMAB
     Indication: B-CELL TYPE ACUTE LEUKAEMIA
  8. BLINATUMOMAB [Concomitant]
     Active Substance: BLINATUMOMAB
     Indication: ACUTE LYMPHOCYTIC LEUKAEMIA
  9. CASPOFUNGIN [CASPOFUNGIN ACETATE] [Concomitant]
     Active Substance: CASPOFUNGIN ACETATE
     Indication: FUNGAL INFECTION
  10. VORICONAZOLE. [Suspect]
     Active Substance: VORICONAZOLE
     Indication: TRICHOSPORON INFECTION
     Dosage: 4 MG/KG, 2X/DAY (EVERY 12 HRS)
     Route: 042
     Dates: start: 20180719
  11. VORICONAZOLE. [Suspect]
     Active Substance: VORICONAZOLE
     Dosage: 2 MG/KG, 2X/DAY (DECREASED)
     Route: 042
     Dates: start: 20180726, end: 20180801
  12. BLINATUMOMAB [Concomitant]
     Active Substance: BLINATUMOMAB
     Indication: PANCYTOPENIA
     Dosage: UNK, CYCLIC
     Dates: start: 201806, end: 20180718
  13. MUROMONAB-CD3 [Concomitant]
     Active Substance: MUROMONAB-CD3
     Indication: B-CELL TYPE ACUTE LEUKAEMIA
     Dosage: UNK
     Dates: start: 201806
  14. CASPOFUNGIN [CASPOFUNGIN ACETATE] [Concomitant]
     Active Substance: CASPOFUNGIN ACETATE
     Indication: FEBRILE NEUTROPENIA
     Dosage: UNK
     Dates: start: 20180706

REACTIONS (2)
  - Neurotoxicity [Unknown]
  - Hallucination [Unknown]

NARRATIVE: CASE EVENT DATE: 20180801
